FAERS Safety Report 6748442-3 (Version None)
Quarter: 2010Q2

REPORT INFORMATION
  Report Type: 
  Country: None (occurrence: None)
  Receive Date: 20100526
  Receipt Date: 20090729
  Transmission Date: 20101027
  Serious: Yes (Hospitalization, Other)
  Sender: FDA-Public Use
  Company Number: 282830

PATIENT
  Age: 57 Year
  Sex: Female
  Weight: 77.1 kg

DRUGS (7)
  1. ACTIVELLA [Suspect]
     Indication: HORMONE THERAPY
     Dosage: ORAL
     Route: 048
     Dates: start: 20021116, end: 20040501
  2. ACTIVELLA [Suspect]
     Indication: HOT FLUSH
     Dosage: ORAL
     Route: 048
     Dates: start: 20021116, end: 20040501
  3. PREMPRO [Suspect]
     Indication: HOT FLUSH
     Dosage: 0.625/2.5 MG, ORAL
     Route: 048
     Dates: start: 19970101, end: 20021101
  4. COMBIPATCH [Suspect]
     Indication: HOT FLUSH
     Dosage: TRANSDERMAL
     Route: 062
     Dates: start: 20040528, end: 20050901
  5. CLIMARA PRO [Suspect]
     Indication: HOT FLUSH
     Dosage: TRANSDERMAL
     Route: 062
     Dates: start: 20050901, end: 20051001
  6. PLAVIX [Concomitant]
  7. PREVACID [Concomitant]

REACTIONS (1)
  - BREAST CANCER [None]
